FAERS Safety Report 10553596 (Version 3)
Quarter: 2014Q4

REPORT INFORMATION
  Report Type: Spontaneous
  Country: DE (occurrence: None)
  Receive Date: 20141028
  Receipt Date: 20141203
  Transmission Date: 20150529
  Serious: Yes (Life-Threatening, Hospitalization, Other)
  Sender: FDA-Public Use
  Company Number: DE2014GSK007288

PATIENT
  Age: 43 Year
  Sex: Male
  Weight: 58 kg

DRUGS (4)
  1. KIVEXA [Concomitant]
     Active Substance: ABACAVIR SULFATE\LAMIVUDINE
  2. TIVICAY [Suspect]
     Active Substance: DOLUTEGRAVIR SODIUM
     Indication: HIV INFECTION
     Dates: start: 20140717
  3. TRIMIPRAMIN (TRIMIPRAMIN MALEATE) [Concomitant]
  4. ZOPICLON [Concomitant]
     Active Substance: ZOPICLONE

REACTIONS (2)
  - Suicidal ideation [None]
  - Panic attack [None]

NARRATIVE: CASE EVENT DATE: 20140813
